FAERS Safety Report 20817886 (Version 2)
Quarter: 2022Q2

REPORT INFORMATION
  Report Type: Report from Study
  Country: ES (occurrence: None)
  Receive Date: 20220512
  Receipt Date: 20220612
  Transmission Date: 20220720
  Serious: Yes (Hospitalization)
  Sender: FDA-Public Use
  Company Number: ES-ROCHE-2884414

PATIENT
  Age: 73 Year
  Sex: Female
  Weight: 44.75 kg

DRUGS (4)
  1. ATEZOLIZUMAB [Suspect]
     Active Substance: ATEZOLIZUMAB
     Indication: Non-small cell lung cancer
     Dosage: DATE OF LAST ADMINISTRATION BEFORE SAE: 28/JUL/2021
     Route: 041
     Dates: start: 20210210
  2. BEVACIZUMAB [Suspect]
     Active Substance: BEVACIZUMAB
     Indication: Non-small cell lung cancer
     Dosage: DATE OF LAST ADMINISTRATION BEFORE SAE: 28/JUL/2021
     Route: 042
     Dates: start: 20210210, end: 20210818
  3. PEMETREXED [Suspect]
     Active Substance: PEMETREXED
     Indication: Non-small cell lung cancer
     Dosage: DATE OF LAST ADMINISTRATION BEFORE SAE: 28/JUL/2021 ?500 MG/M2, Q3W, I.V.
     Route: 042
     Dates: start: 20210210
  4. FILGRASTIM [Concomitant]
     Active Substance: FILGRASTIM

REACTIONS (1)
  - Ileus [Recovered/Resolved]

NARRATIVE: CASE EVENT DATE: 20210730
